FAERS Safety Report 5044508-7 (Version None)
Quarter: 2006Q3

REPORT INFORMATION
  Report Type: 
  Country: None (occurrence: None)
  Receive Date: 20060706
  Receipt Date: 20060626
  Transmission Date: 20061208
  Serious: Yes (Death, Hospitalization)
  Sender: FDA-Public Use
  Company Number: US-SANOFI-SYNTHELABO-A03200604172

PATIENT
  Sex: Male

DRUGS (6)
  1. COUMADIN [Concomitant]
     Route: 048
  2. TORSEMIDE [Concomitant]
     Route: 065
  3. LANOXIN [Concomitant]
     Route: 048
  4. LIPITOR [Concomitant]
     Route: 048
  5. CARTIA XT [Concomitant]
     Route: 048
  6. PLAVIX [Suspect]
     Indication: DRUG USE FOR UNKNOWN INDICATION
     Route: 048

REACTIONS (7)
  - ACUTE MYOCARDIAL INFARCTION [None]
  - DEATH [None]
  - GASTROINTESTINAL NECROSIS [None]
  - INTUBATION [None]
  - RENAL FAILURE ACUTE [None]
  - RESPIRATORY FAILURE [None]
  - SEPSIS [None]
